FAERS Safety Report 9430347 (Version 2)
Quarter: 2013Q4

REPORT INFORMATION
  Report Type: Spontaneous
  Country: US (occurrence: US)
  Receive Date: 20130730
  Receipt Date: 20131015
  Transmission Date: 20140711
  Serious: Yes (Other)
  Sender: FDA-Public Use
  Company Number: US-GLAXOSMITHKLINE-A1035299A

PATIENT
  Sex: Female

DRUGS (1)
  1. LAMICTAL [Suspect]
     Indication: BIPOLAR I DISORDER
     Route: 048
     Dates: start: 20090109

REACTIONS (4)
  - Abortion spontaneous [Unknown]
  - Blighted ovum [Unknown]
  - Uterine dilation and curettage [Unknown]
  - Exposure during pregnancy [Unknown]
